FAERS Safety Report 4951629-3 (Version None)
Quarter: 2006Q1

REPORT INFORMATION
  Report Type: 
  Country: None (occurrence: None)
  Receive Date: 20060317
  Receipt Date: 20060227
  Transmission Date: 20060701
  Serious: Yes (Life-Threatening, Hospitalization, Disabling, Other)
  Sender: FDA-Public Use
  Company Number: USA040360877

PATIENT
  Sex: Male
  Weight: 81.8 kg

DRUGS (13)
  1. FORTEO [Suspect]
     Indication: OSTEOPOROSIS
     Dosage: 20 UG DAILY (1/D)
     Dates: start: 20040116, end: 20040122
  2. COUMADIN [Concomitant]
  3. TOPROL-XL [Concomitant]
  4. HYDROCHLOROTHIAZIDE [Concomitant]
  5. FLOMAX (MORNIFLUMATE) [Concomitant]
  6. MULTIVITAMIN (VITAMIN E) [Concomitant]
  7. VITAMIN E [Concomitant]
  8. FLONASE [Concomitant]
  9. CLARINEX [Concomitant]
  10. CALCIUM PLUS D [Concomitant]
  11. PROSCAR [Concomitant]
  12. GLUCOSAMINE CHONDROITIN [Concomitant]
  13. FORTEO PEN, 250 MCG/ML (3ML) [Concomitant]

REACTIONS (48)
  - ACTIVITIES OF DAILY LIVING IMPAIRED [None]
  - ACUTE MYOCARDIAL INFARCTION [None]
  - ALANINE AMINOTRANSFERASE INCREASED [None]
  - ANAEMIA MACROCYTIC [None]
  - ANOXIC ENCEPHALOPATHY [None]
  - APHAGIA [None]
  - ARRHYTHMIA [None]
  - ARTERIOSCLEROSIS CORONARY ARTERY [None]
  - ASPARTATE AMINOTRANSFERASE INCREASED [None]
  - ASTHENIA [None]
  - ATRIAL FIBRILLATION [None]
  - BACTERIA STOOL IDENTIFIED [None]
  - BLOOD GLUCOSE INCREASED [None]
  - CARDIAC ARREST [None]
  - CARDIAC FAILURE CONGESTIVE [None]
  - CAROTID ARTERY DISEASE [None]
  - CATHETER RELATED COMPLICATION [None]
  - CEREBRAL ATROPHY [None]
  - CLOSTRIDIUM COLITIS [None]
  - COMA [None]
  - CONFUSIONAL STATE [None]
  - CONVULSION [None]
  - DIFFICULTY IN WALKING [None]
  - DYSPHAGIA [None]
  - ELECTROENCEPHALOGRAM ABNORMAL [None]
  - FALL [None]
  - GAMMA-GLUTAMYLTRANSFERASE INCREASED [None]
  - HAEMATURIA [None]
  - HEAD INJURY [None]
  - HEPATIC ENZYME INCREASED [None]
  - LARYNGEAL VENTRICLE PROLAPSE [None]
  - MEDICAL DEVICE COMPLICATION [None]
  - MUSCLE RIGIDITY [None]
  - ORAL CANDIDIASIS [None]
  - PANCREATITIS [None]
  - PCO2 DECREASED [None]
  - PHARMACEUTICAL PRODUCT COMPLAINT [None]
  - PNEUMONIA [None]
  - PNEUMONIA ASPIRATION [None]
  - PYREXIA [None]
  - SINUSITIS [None]
  - SPEECH DISORDER [None]
  - TREMOR [None]
  - VENTRICULAR HYPERKINESIA [None]
  - VENTRICULAR HYPERTROPHY [None]
  - VOCAL CORD DISORDER [None]
  - WEIGHT DECREASED [None]
  - WHITE BLOOD CELL COUNT INCREASED [None]
